FAERS Safety Report 9343694 (Version 2)
Quarter: 2013Q3

REPORT INFORMATION
  Report Type: Spontaneous
  Country: FR (occurrence: FR)
  Receive Date: 20130612
  Receipt Date: 20130710
  Transmission Date: 20140515
  Serious: Yes (Hospitalization)
  Sender: FDA-Public Use
  Company Number: PHHY2013FR058791

PATIENT
  Age: 58 Year
  Sex: Male

DRUGS (13)
  1. TASIGNA [Suspect]
     Indication: CHRONIC MYELOID LEUKAEMIA
     Dosage: 200 MG (1 DF MORNING, 2 DF EVENING)
     Route: 048
     Dates: start: 201002, end: 20100520
  2. TASIGNA [Suspect]
     Dates: start: 20130521
  3. METOPROLOL [Concomitant]
     Dosage: 2 DF/DAY
     Dates: end: 20130520
  4. PERINDOPRIL [Concomitant]
     Dosage: 2 DF/DAY
  5. CLOPIDOGREL [Concomitant]
     Dosage: 75 MG, QD
     Dates: end: 20130520
  6. EZETROL [Concomitant]
     Dosage: 10 MG, QD
     Dates: start: 20130419, end: 20130520
  7. PRAVASTATINE [Concomitant]
     Dosage: 40 MG, QD
     Dates: end: 20130520
  8. ORACILLINE [Concomitant]
     Dosage: 1 DF, TID
  9. ESOMEPRAZOLE [Concomitant]
     Dosage: 20 MG, QD
     Dates: end: 20130520
  10. PARACETAMOL [Concomitant]
     Dosage: 1 G, TID
  11. SPASFON [Concomitant]
     Dosage: 160 MG, TID
  12. MOPRAL [Concomitant]
  13. TAHOR [Concomitant]

REACTIONS (1)
  - Acute coronary syndrome [Recovered/Resolved]
